FAERS Safety Report 13329657 (Version 1)
Quarter: 2017Q1

REPORT INFORMATION
  Report Type: Spontaneous
  Country: US (occurrence: US)
  Receive Date: 20170313
  Receipt Date: 20170313
  Transmission Date: 20170428
  Serious: Yes (Other)
  Sender: FDA-Public Use
  Company Number: US-EMD SERONO-8146293

PATIENT
  Age: 44 Year
  Sex: Female

DRUGS (1)
  1. REBIF [Suspect]
     Active Substance: INTERFERON BETA-1A
     Indication: PRODUCT USED FOR UNKNOWN INDICATION
     Route: 058

REACTIONS (9)
  - Fear of injection [Not Recovered/Not Resolved]
  - Anticipatory anxiety [Unknown]
  - Pain [Unknown]
  - Injection site inflammation [Not Recovered/Not Resolved]
  - Needle fatigue [Unknown]
  - Osteonecrosis [Unknown]
  - Injection site pain [Not Recovered/Not Resolved]
  - Arthropathy [Unknown]
  - Skin reaction [Unknown]

NARRATIVE: CASE EVENT DATE: 2012
